FAERS Safety Report 8138185-6 (Version None)
Quarter: 2012Q1

REPORT INFORMATION
  Report Type: 
  Country: None (occurrence: None)
  Receive Date: 20120215
  Receipt Date: 20120207
  Transmission Date: 20120608
  Serious: Yes (Other)
  Sender: FDA-Public Use
  Company Number: US-ASTELLAS-2012US001677

PATIENT
  Sex: Male
  Weight: 90 kg

DRUGS (3)
  1. RANITIDINE [Concomitant]
     Indication: ABDOMINAL DISCOMFORT
     Dosage: 150 MG, BID
     Route: 048
     Dates: start: 20060101
  2. PROGRAF [Suspect]
     Indication: RENAL TRANSPLANT
     Dosage: 1 MG, BID
     Route: 048
     Dates: start: 19980717
  3. GABAPENTIN [Concomitant]
     Indication: NEUROPATHY PERIPHERAL
     Dosage: 600 MG, TID
     Route: 048
     Dates: start: 20060101

REACTIONS (1)
  - RENAL TRANSPLANT [None]
